FAERS Safety Report 9342666 (Version 1)
Quarter: 2013Q2

REPORT INFORMATION
  Report Type: Spontaneous
  Country: US (occurrence: None)
  Receive Date: 20130607
  Receipt Date: 20130607
  Transmission Date: 20140414
  Serious: Yes (Other)
  Sender: FDA-Public Use
  Company Number: DEP_00918_2013

PATIENT
  Age: 83 Year
  Sex: Female
  Weight: 83.46 kg

DRUGS (5)
  1. GRALISE [Suspect]
     Indication: BACK PAIN
     Dosage: STARTER PACK (SAMPLE)
     Route: 048
     Dates: start: 201303, end: 2013
  2. GRALISE [Suspect]
     Indication: OFF LABEL USE
     Dosage: STARTER PACK (SAMPLE)
     Route: 048
     Dates: start: 201303, end: 2013
  3. EDARBI [Concomitant]
  4. CLONIDINE [Concomitant]
  5. WARFARIN [Concomitant]

REACTIONS (4)
  - Dizziness [None]
  - Dysstasia [None]
  - Feeling abnormal [None]
  - Vertigo [None]
